FAERS Safety Report 24292878 (Version 1)
Quarter: 2024Q3

REPORT INFORMATION
  Report Type: Spontaneous
  Country: US (occurrence: None)
  Receive Date: 20240906
  Receipt Date: 20240906
  Transmission Date: 20241016
  Serious: No
  Sender: DOMPE FARMACEUTICI
  Company Number: US-FARMAPROD-202308-202311-3216

PATIENT
  Age: 78 Year
  Sex: Female

DRUGS (18)
  1. OXERVATE [Suspect]
     Active Substance: CENEGERMIN-BKBJ
     Indication: Neurotrophic keratopathy
     Route: 047
     Dates: start: 20231027
  2. LOSARTAN POTASSIUM [Concomitant]
     Active Substance: LOSARTAN POTASSIUM
  3. ROSUVASTATIN CALCIUM [Concomitant]
     Active Substance: ROSUVASTATIN CALCIUM
  4. MONTELUKAST SODIUM [Concomitant]
     Active Substance: MONTELUKAST\MONTELUKAST SODIUM
  5. PANTOPRAZOLE SODIUM [Concomitant]
     Active Substance: PANTOPRAZOLE SODIUM
  6. SERTRALINE HYDROCHLORIDE [Concomitant]
     Active Substance: SERTRALINE HYDROCHLORIDE
  7. MENAQUINONE 6 [Concomitant]
     Active Substance: MENAQUINONE 6
  8. MAGNESIUM [Concomitant]
     Active Substance: MAGNESIUM
  9. PROBIOTIC 10B CELL [Concomitant]
  10. CALCIUM [Concomitant]
     Active Substance: CALCIUM
  11. VITAMIN D-400 [Concomitant]
  12. VITAMIN K [Concomitant]
     Active Substance: PHYTONADIONE
  13. SYSTANE (HYPROMELLOSE 2910 (4000 MPA.S)) [Concomitant]
     Active Substance: HYPROMELLOSE 2910 (4000 MPA.S)
     Dosage: 0.3 %-0.4%
  14. CEQUA [Concomitant]
     Active Substance: CYCLOSPORINE
  15. PROLIA [Concomitant]
     Active Substance: DENOSUMAB
     Dosage: VIAL.
  16. EVENITY [Concomitant]
     Active Substance: ROMOSOZUMAB-AQQG
     Dosage: 105MG/1.17  SYRINGE
  17. LINZESS [Concomitant]
     Active Substance: LINACLOTIDE
  18. VITAMIN C+D+ZINC [Concomitant]

REACTIONS (10)
  - Eye pain [Unknown]
  - Eye irritation [Unknown]
  - Photophobia [Unknown]
  - Headache [Not Recovered/Not Resolved]
  - Nausea [Unknown]
  - Lacrimation increased [Unknown]
  - Foreign body sensation in eyes [Unknown]
  - Wrong technique in product usage process [Unknown]
  - Sleep disorder [Unknown]
  - Hyperhidrosis [Unknown]

NARRATIVE: CASE EVENT DATE: 20231029
